FAERS Safety Report 7556641-6 (Version None)
Quarter: 2011Q2

REPORT INFORMATION
  Report Type: 
  Country: None (occurrence: None)
  Receive Date: 20110620
  Receipt Date: 20110613
  Transmission Date: 20111010
  Serious: Yes (Hospitalization, Other)
  Sender: FDA-Public Use
  Company Number: US-ASTRAZENECA-2009UW19578

PATIENT
  Age: 12356 Day
  Sex: Male

DRUGS (15)
  1. SEROQUEL [Suspect]
     Indication: BIPOLAR DISORDER
     Dosage: 50 MG-400 MG
     Route: 048
     Dates: start: 20070321
  2. PHENYTOIN EX [Concomitant]
     Dosage: 100 MG-400 MG
     Dates: start: 20060313
  3. LAMICTAL [Concomitant]
     Dosage: 25 MG-100 MG
     Dates: start: 20070530
  4. APAP W/ CODEINE [Concomitant]
     Dosage: 300-30 MG
     Dates: start: 20051121
  5. ACETAMINOPHEN AND HYDROCODONE BITARTRATE [Concomitant]
     Dates: start: 20060828
  6. PRILOSEC [Concomitant]
     Dates: start: 20060714
  7. LORAZEPAM [Concomitant]
     Dates: start: 20070321
  8. PROPRANOLOL [Concomitant]
     Dates: start: 20070530
  9. PROMETHAZINE [Concomitant]
     Dates: start: 20060828
  10. ATENOLOL [Concomitant]
     Dates: start: 20061218
  11. TEMAZEPAM [Concomitant]
     Dates: start: 20070321
  12. CLONAZEPAM [Concomitant]
     Dates: start: 20090301
  13. LEXAPRO [Concomitant]
     Dates: start: 20060223
  14. EFFEXOR XR [Concomitant]
     Dates: start: 20070118
  15. CARBAMAZEPINE [Concomitant]
     Dates: start: 20090301

REACTIONS (4)
  - DIABETES MELLITUS [None]
  - OVERDOSE [None]
  - MULTIPLE DRUG OVERDOSE INTENTIONAL [None]
  - SUICIDE ATTEMPT [None]
